FAERS Safety Report 10838402 (Version 1)
Quarter: 2015Q1

REPORT INFORMATION
  Report Type: Spontaneous
  Country: NL (occurrence: None)
  Receive Date: 20150218
  Receipt Date: 20150218
  Transmission Date: 20150721
  Serious: Yes (Other)
  Sender: FDA-Public Use
  Company Number: 2015-10516

PATIENT
  Age: 75 Year
  Sex: Male

DRUGS (4)
  1. SPIRIVA (TIOTROPIUM BROMIDE) [Concomitant]
  2. BETADINE /00080001/ (POVIDONE-IODINE) [Concomitant]
  3. EYLEA [Suspect]
     Active Substance: AFLIBERCEPT
     Indication: AGE-RELATED MACULAR DEGENERATION
     Route: 031
     Dates: start: 20141104
  4. SYMBICORT [Concomitant]
     Active Substance: BUDESONIDE\FORMOTEROL FUMARATE DIHYDRATE

REACTIONS (2)
  - Blindness [None]
  - Endophthalmitis [None]

NARRATIVE: CASE EVENT DATE: 20141106
